FAERS Safety Report 9207851 (Version 2)
Quarter: 2013Q2

REPORT INFORMATION
  Report Type: Spontaneous
  Country: US (occurrence: US)
  Receive Date: 20130403
  Receipt Date: 20130502
  Transmission Date: 20140414
  Serious: No
  Sender: FDA-Public Use
  Company Number: US-JNJFOC-20130315703

PATIENT
  Sex: Female
  Weight: 86.18 kg

DRUGS (26)
  1. DURAGESIC [Suspect]
     Indication: SCOLIOSIS
     Route: 062
     Dates: start: 20120302
  2. TAMSULOSIN [Concomitant]
     Indication: DYSURIA
     Route: 065
  3. ZYRTEC [Concomitant]
     Indication: SINUSITIS
     Dosage: IN AM
     Route: 065
  4. ZYRTEC [Concomitant]
     Indication: MULTIPLE ALLERGIES
     Dosage: IN AM
     Route: 065
  5. METHADONE [Concomitant]
     Indication: PAIN
     Route: 048
  6. METHADONE [Concomitant]
     Indication: PAIN
     Route: 048
  7. METHADONE [Concomitant]
     Indication: PAIN
     Dosage: 10 MG 1 AT BREAKFAST, LUNCH AND DINNER??1 AT BREAKFAST, 1 AT LUNCH AND 2 AT DINNER EVERY OTHER DAY
     Route: 048
  8. CYMBALTA [Concomitant]
     Indication: PAIN
     Route: 048
  9. CYMBALTA [Concomitant]
     Indication: DEPRESSION
     Route: 048
  10. CYMBALTA [Concomitant]
     Indication: AFFECTIVE DISORDER
     Route: 048
  11. HYDROCODONE [Concomitant]
     Indication: PAIN
     Dosage: 10/325MG
     Route: 048
  12. LANZOPRAZOLE [Concomitant]
     Indication: NAUSEA
     Route: 065
  13. REQUIP [Concomitant]
     Indication: RESTLESS LEGS SYNDROME
     Route: 065
  14. LUNESTA [Concomitant]
     Indication: SLEEP DISORDER THERAPY
     Dosage: AT BEDTIME
     Route: 065
  15. TRAZODONE [Concomitant]
     Indication: SLEEP DISORDER THERAPY
     Dosage: AT BED TIME
     Route: 065
  16. COMBI-PATCH [Concomitant]
     Indication: HORMONE REPLACEMENT THERAPY
     Route: 065
  17. FUROSEMIDE [Concomitant]
     Indication: PROPHYLAXIS
     Route: 065
  18. DIAZEPAM [Concomitant]
     Indication: PAIN
     Dosage: 1 AT BREAKFAST 2 AT LUNCH, 1 AT DINNER AND 2 AT BED TIME
     Route: 065
  19. DIAZEPAM [Concomitant]
     Indication: ANXIETY
     Dosage: 1 AT BREAKFAST 2 AT LUNCH, 1 AT DINNER AND 2 AT BED TIME
     Route: 065
  20. AMBIEN CR [Concomitant]
     Indication: SLEEP DISORDER THERAPY
     Dosage: AT LUNCH
     Route: 065
  21. UNISOM SLEEPGELS [Concomitant]
     Indication: SLEEP DISORDER THERAPY
     Dosage: AT LUNCH OR AT BED
     Route: 065
  22. NORCO [Concomitant]
     Indication: PAIN
     Dosage: 10-325 MG 2 AT AM 2 AT LUNCH AND 2 AT DINNER
     Route: 065
  23. NASONEX [Concomitant]
     Indication: MULTIPLE ALLERGIES
     Route: 045
  24. DOCUSATE [Concomitant]
     Indication: ABNORMAL FAECES
     Route: 065
  25. SENNA [Concomitant]
     Indication: CONSTIPATION
     Dosage: 8.6 TO 50 MG FIVE DAILY AT BED TIME
     Route: 065
  26. VOLTAREN [Concomitant]
     Indication: INFLAMMATION
     Route: 065

REACTIONS (9)
  - Therapeutic response decreased [Not Recovered/Not Resolved]
  - Withdrawal syndrome [Not Recovered/Not Resolved]
  - Therapeutic response delayed [Not Recovered/Not Resolved]
  - Drug administered at inappropriate site [Not Recovered/Not Resolved]
  - Inappropriate schedule of drug administration [Not Recovered/Not Resolved]
  - Cardiovascular insufficiency [Not Recovered/Not Resolved]
  - Application site irritation [Not Recovered/Not Resolved]
  - Drug administration error [Not Recovered/Not Resolved]
  - Application site discolouration [Not Recovered/Not Resolved]
